FAERS Safety Report 9702672 (Version 2)
Quarter: 2013Q4

REPORT INFORMATION
  Report Type: Spontaneous
  Country: CO (occurrence: CO)
  Receive Date: 20131121
  Receipt Date: 20131227
  Transmission Date: 20140711
  Serious: Yes (Other)
  Sender: FDA-Public Use
  Company Number: CO-BAXTER-2013BAX045343

PATIENT
  Age: 56 Year
  Sex: Female

DRUGS (2)
  1. TISSEEL CONGELADO [Suspect]
     Indication: SURGERY
     Route: 061
     Dates: start: 20131112, end: 20131112
  2. TISSEEL CONGELADO [Suspect]
     Indication: PANCREATIC LESION EXCISION

REACTIONS (3)
  - Drug ineffective [Recovered/Resolved]
  - Product physical issue [Recovered/Resolved]
  - Product reconstitution issue [Recovered/Resolved]
